FAERS Safety Report 23240131 (Version 1)
Quarter: 2023Q4

REPORT INFORMATION
  Report Type: Spontaneous
  Country: GB (occurrence: GB)
  Receive Date: 20231129
  Receipt Date: 20231129
  Transmission Date: 20240110
  Serious: Yes (Other)
  Sender: FDA-Public Use
  Company Number: GB-HIKMA PHARMACEUTICALS-GB-H14001-23-67353

PATIENT
  Sex: Female

DRUGS (1)
  1. CIPROFLOXACIN [Suspect]
     Active Substance: CIPROFLOXACIN
     Indication: Product used for unknown indication
     Dosage: UNKNOWN
     Route: 065

REACTIONS (12)
  - Spinal pain [Unknown]
  - Musculoskeletal stiffness [Not Recovered/Not Resolved]
  - Neck pain [Not Recovered/Not Resolved]
  - Joint noise [Unknown]
  - Constipation [Unknown]
  - Paraesthesia [Not Recovered/Not Resolved]
  - Back pain [Not Recovered/Not Resolved]
  - Abdominal pain [Unknown]
  - Dyspnoea [Unknown]
  - Dizziness [Not Recovered/Not Resolved]
  - Headache [Not Recovered/Not Resolved]
  - Myalgia [Not Recovered/Not Resolved]

NARRATIVE: CASE EVENT DATE: 20230924
